FAERS Safety Report 16038081 (Version 2)
Quarter: 2019Q1

REPORT INFORMATION
  Report Type: Report from Study
  Country: DE (occurrence: DE)
  Receive Date: 20190305
  Receipt Date: 20190327
  Transmission Date: 20190418
  Serious: Yes (Hospitalization, Other)
  Sender: FDA-Public Use
  Company Number: DE-BIOMARINAP-DE-2019-122155

PATIENT
  Age: 2 Year
  Sex: Female
  Weight: 10.5 kg

DRUGS (2)
  1. FENISTIL [Concomitant]
     Active Substance: DIMETHINDENE
     Indication: PREMEDICATION
     Dosage: UNK
     Route: 048
     Dates: start: 20190130, end: 20190313
  2. BMN 190 [Suspect]
     Active Substance: CERLIPONASE ALFA
     Indication: NEURONAL CEROID LIPOFUSCINOSIS
     Dosage: 165 MILLIGRAM, QOW
     Route: 020
     Dates: start: 20190225, end: 20190225

REACTIONS (6)
  - Rash [Recovered/Resolved]
  - Bronchospasm [Recovered/Resolved]
  - Diarrhoea [Recovered/Resolved]
  - Hypotension [Recovered/Resolved]
  - Anaphylactic reaction [Recovered/Resolved]
  - Tachycardia [Recovered/Resolved]

NARRATIVE: CASE EVENT DATE: 20190225
